FAERS Safety Report 18756378 (Version 1)
Quarter: 2021Q1

REPORT INFORMATION
  Report Type: Spontaneous
  Country: US (occurrence: US)
  Receive Date: 20210118
  Receipt Date: 20210118
  Transmission Date: 20210419
  Serious: Yes (Disabling)
  Sender: FDA-Public Use
  Company Number: None

PATIENT
  Age: 89 Year
  Sex: Male
  Weight: 81 kg

DRUGS (9)
  1. LUPRON [Concomitant]
     Active Substance: LEUPROLIDE ACETATE
  2. NILANDRON [Suspect]
     Active Substance: NILUTAMIDE
     Indication: PROSTATE CANCER
     Dosage: ?          QUANTITY:1 TABLET(S);?
     Route: 048
     Dates: start: 20200801, end: 20201001
  3. METOPROLOL. [Concomitant]
     Active Substance: METOPROLOL
  4. FISH OIL [Concomitant]
     Active Substance: FISH OIL
  5. XARELTO [Concomitant]
     Active Substance: RIVAROXABAN
  6. EZETIMIBE. [Concomitant]
     Active Substance: EZETIMIBE
  7. VITAMIN B COMPLEX [Concomitant]
     Active Substance: CYANOCOBALAMIN\DEXPANTHENOL\NIACINAMIDE\PYRIDOXINE HYDROCHLORIDE\RIBOFLAVIN 5^-PHOSPHATE SODIUM\THIAMINE HYDROCHLORIDE\VITAMIN B COMPLEX
  8. SPIROLACTONE [Concomitant]
     Active Substance: SPIRONOLACTONE
  9. PRALUENT [Concomitant]
     Active Substance: ALIROCUMAB

REACTIONS (3)
  - Exercise tolerance decreased [None]
  - Asthenia [None]
  - Dyspnoea [None]

NARRATIVE: CASE EVENT DATE: 20201001
